FAERS Safety Report 8924384 (Version 1)
Quarter: 2012Q4

REPORT INFORMATION
  Report Type: 
  Country: US (occurrence: US)
  Receive Date: 20121126
  Receipt Date: 20121126
  Transmission Date: 20130627
  Serious: No
  Sender: FDA-Public Use
  Company Number: US-MYLANLABS-2012S1008594

PATIENT
  Age: 60 Year
  Sex: Female

DRUGS (2)
  1. CLONAZEPAM [Suspect]
     Indication: PANIC DISORDER
     Route: 048
     Dates: end: 201203
  2. CLONAZEPAM [Suspect]
     Indication: PANIC DISORDER
     Dates: start: 201203

REACTIONS (4)
  - Drug ineffective [Recovered/Resolved]
  - Choking sensation [Recovered/Resolved]
  - Panic attack [Recovered/Resolved]
  - Fear [Recovered/Resolved]
